FAERS Safety Report 21588986 (Version 1)
Quarter: 2022Q4

REPORT INFORMATION
  Report Type: Spontaneous
  Country: US (occurrence: None)
  Receive Date: 20221111
  Receipt Date: 20221111
  Transmission Date: 20230113
  Serious: No
  Sender: FDA-Public Use
  Company Number: None

PATIENT
  Age: 47 Year
  Sex: Male

DRUGS (1)
  1. HUMIRA [Suspect]
     Active Substance: ADALIMUMAB
     Indication: Hidradenitis
     Dosage: OTHER QUANTITY : 160MG (2 PENS(;?FREQUENCY : AS DIRECTED;?
     Route: 058
     Dates: start: 202205

REACTIONS (2)
  - Skin infection [None]
  - Melanocytic naevus [None]
